FAERS Safety Report 24564517 (Version 2)
Quarter: 2024Q4

REPORT INFORMATION
  Report Type: Spontaneous
  Country: US (occurrence: US)
  Receive Date: 20241030
  Receipt Date: 20241120
  Transmission Date: 20250115
  Serious: Yes (Death, Hospitalization)
  Sender: ULTRAGENYX PHARMACEUTICAL
  Company Number: US-ULTRAGENYX PHARMACEUTICAL INC.-US-UGX-24-02038

PATIENT
  Sex: Male
  Weight: 107 kg

DRUGS (9)
  1. DOJOLVI [Suspect]
     Active Substance: TRIHEPTANOIN
     Indication: Very long-chain acyl-coenzyme A dehydrogenase deficiency
     Dosage: 10 MILLILITER, 5 TIMES PER DAY INCLUDING AT MEALTIMES OR SNACKS
     Route: 048
     Dates: start: 20211009
  2. DOJOLVI [Suspect]
     Active Substance: TRIHEPTANOIN
     Dosage: 10 MILLILITER, 5 TIMES PER DAY INCLUDING AT MEALTIMES OR SNACKS (PRIOR TO DEATH)
     Route: 048
  3. COENZYME Q10 [Concomitant]
     Active Substance: DIETARY SUPPLEMENT\UBIDECARENONE
     Indication: Product used for unknown indication
     Dosage: 30 MILLIGRAM, CAPSULE
  4. ENALAPRILAT [Concomitant]
     Active Substance: ENALAPRILAT
     Indication: Product used for unknown indication
     Dosage: 10 MILLIGRAM, TABLET
  5. ALDACTONE [Concomitant]
     Active Substance: SPIRONOLACTONE
     Indication: Product used for unknown indication
     Dosage: 25 MILLIGRAM, TABLET
  6. METOPROLOL TARTRATE [Concomitant]
     Active Substance: METOPROLOL TARTRATE
     Indication: Product used for unknown indication
     Dosage: 25 MILLIGRAM, TABLET
  7. DIGOX [DIGOXIN] [Concomitant]
     Indication: Product used for unknown indication
     Dosage: 125 MICROGRAM, TABLET
  8. LASIX [Concomitant]
     Active Substance: FUROSEMIDE
     Indication: Product used for unknown indication
     Dosage: UNK
  9. ALBUTEROL [Concomitant]
     Active Substance: ALBUTEROL
     Indication: Product used for unknown indication
     Dosage: UNK

REACTIONS (3)
  - Cardiac arrest [Fatal]
  - Chronic respiratory failure [Unknown]
  - Arrhythmia [Unknown]

NARRATIVE: CASE EVENT DATE: 20240101
